FAERS Safety Report 9227254 (Version 2)
Quarter: 2013Q2

REPORT INFORMATION
  Report Type: Report from Study
  Country: DE (occurrence: DE)
  Receive Date: 20130412
  Receipt Date: 20130415
  Transmission Date: 20140414
  Serious: Yes (Hospitalization, Disabling)
  Sender: FDA-Public Use
  Company Number: PHHO2013DE004968

PATIENT
  Age: 60 Year
  Sex: Male
  Weight: 78 kg

DRUGS (3)
  1. MYCOPHENOLIC ACID [Suspect]
     Indication: RENAL TRANSPLANT
     Dosage: 720 MG, BID
     Dates: start: 20130226
  2. PROGRAF [Suspect]
     Indication: RENAL TRANSPLANT
     Dosage: 4 MG, (3/0/4 MG)
     Route: 048
     Dates: start: 20130226
  3. RITUXIMAB [Concomitant]
     Indication: RENAL TRANSPLANT
     Dosage: 375 MG/M2, UNK
     Route: 042
     Dates: start: 20130221, end: 20130328

REACTIONS (1)
  - Glomerulonephritis [Recovered/Resolved]
